FAERS Safety Report 22092703 (Version 1)
Quarter: 2023Q1

REPORT INFORMATION
  Report Type: Spontaneous
  Country: US (occurrence: None)
  Receive Date: 20230313
  Receipt Date: 20230313
  Transmission Date: 20230418
  Serious: No
  Sender: FDA-Public Use
  Company Number: None

PATIENT
  Age: 45 Year
  Sex: 0

DRUGS (1)
  1. ACETAMINOPHEN [Suspect]
     Active Substance: ACETAMINOPHEN
     Indication: Pain
     Dosage: 2 CAPSULES AS NEEDED ORAL
     Route: 048
     Dates: start: 20230301, end: 20230311

REACTIONS (1)
  - Somnolence [None]

NARRATIVE: CASE EVENT DATE: 20230311
